FAERS Safety Report 17889926 (Version 1)
Quarter: 2020Q2

REPORT INFORMATION
  Report Type: Other
  Country: US (occurrence: US)
  Receive Date: 20200612
  Receipt Date: 20200612
  Transmission Date: 20200714
  Serious: No
  Sender: FDA-Public Use
  Company Number: US-VISTAPHARM, INC.-VER202004-000751

PATIENT
  Sex: Female

DRUGS (1)
  1. NYSTATIN ORAL SUSPENSION, USP 100,000 UNITS/ML [Suspect]
     Active Substance: NYSTATIN
     Indication: PRODUCT USED FOR UNKNOWN INDICATION
     Dosage: 5 ML FOUR TIMES DAILY FOR 100,000 IU/ML SUSPENSION FOR A 20 DAY SUPPLY
     Route: 048

REACTIONS (3)
  - Product substitution issue [Unknown]
  - Reaction to excipient [Unknown]
  - Pruritus [Unknown]
